FAERS Safety Report 9052988 (Version 2)
Quarter: 2013Q2

REPORT INFORMATION
  Report Type: Spontaneous
  Country: US (occurrence: US)
  Receive Date: 20130208
  Receipt Date: 20130415
  Transmission Date: 20140414
  Serious: Yes (Hospitalization)
  Sender: FDA-Public Use
  Company Number: US-BIOGENIDEC-2013BI011670

PATIENT
  Age: 60 Year
  Sex: Male

DRUGS (1)
  1. TYSABRI [Suspect]
     Indication: MULTIPLE SCLEROSIS
     Route: 042
     Dates: start: 20110117

REACTIONS (4)
  - Ulcer haemorrhage [Recovered/Resolved]
  - Colitis [Recovered/Resolved]
  - Ligament laxity [Not Recovered/Not Resolved]
  - Muscle spasms [Recovered/Resolved]
